FAERS Safety Report 7352587-7 (Version None)
Quarter: 2011Q1

REPORT INFORMATION
  Report Type: 
  Country: None (occurrence: None)
  Receive Date: 20110310
  Receipt Date: 20110310
  Transmission Date: 20110831
  Serious: Yes (Other)
  Sender: FDA-Public Use
  Company Number: None

PATIENT
  Age: 56 Year
  Sex: Female
  Weight: 48.5349 kg

DRUGS (1)
  1. LEVAQUIN [Suspect]
     Indication: SINUSITIS
     Dosage: ONE 750 MG PILL DAILY PO
     Route: 048
     Dates: start: 20100211, end: 20100221

REACTIONS (1)
  - MUSCULOSKELETAL STIFFNESS [None]
